FAERS Safety Report 13341031 (Version 2)
Quarter: 2017Q2

REPORT INFORMATION
  Report Type: Spontaneous
  Country: IT (occurrence: IT)
  Receive Date: 20170316
  Receipt Date: 20170403
  Transmission Date: 20170830
  Serious: Yes (Other)
  Sender: FDA-Public Use
  Company Number: IT-TEVA-748831ACC

PATIENT

DRUGS (5)
  1. DICLOFENAC [Suspect]
     Active Substance: DICLOFENAC
     Route: 065
  2. NAPROSSENE [Suspect]
     Active Substance: NAPROXEN
     Route: 065
  3. ROFECOXIB [Suspect]
     Active Substance: ROFECOXIB
     Route: 065
  4. IBUPROFEN. [Suspect]
     Active Substance: IBUPROFEN
     Route: 065
  5. CELECOXIB. [Suspect]
     Active Substance: CELECOXIB
     Route: 065

REACTIONS (2)
  - Myocardial infarction [Unknown]
  - Cardiovascular disorder [Unknown]
